FAERS Safety Report 9053740 (Version 1)
Quarter: 2013Q1

REPORT INFORMATION
  Report Type: Spontaneous
  Country: IN (occurrence: IN)
  Receive Date: 20130208
  Receipt Date: 20130208
  Transmission Date: 20140127
  Serious: Yes (Hospitalization)
  Sender: FDA-Public Use
  Company Number: IN-ACCORD-016299

PATIENT
  Age: 49 Year
  Sex: Male

DRUGS (2)
  1. IRINOTECAN HYDROCHLORIDE [Suspect]
     Indication: SMALL CELL LUNG CANCER
     Dosage: ON DAYS 1 AND 8 OF A 3 WEEKLY CYCLE
  2. CISPLATIN [Suspect]
     Indication: SMALL CELL LUNG CANCER
     Dosage: ON DAYS 1 AND 8 OF A 3 WEEKLY CYCLE

REACTIONS (3)
  - Tuberculosis [Recovered/Resolved]
  - Off label use [Unknown]
  - Pleural effusion [Recovered/Resolved]
